FAERS Safety Report 4595937-7 (Version None)
Quarter: 2005Q1

REPORT INFORMATION
  Report Type: 
  Country: None (occurrence: None)
  Receive Date: 20050225
  Receipt Date: 20041228
  Transmission Date: 20050727
  Serious: Yes (Hospitalization)
  Sender: FDA-Public Use
  Company Number: 9630

PATIENT
  Sex: Male

DRUGS (7)
  1. METHOTREXATE [Suspect]
     Indication: POLYMYALGIA RHEUMATICA
     Dosage: 7.5 MG WEEKLY
  2. PREDNISONE [Suspect]
     Indication: ILL-DEFINED DISORDER
     Dosage: 15 MG
  3. PREDNISONE [Suspect]
     Indication: INFECTION
     Dosage: 15 MG
  4. EZETIMIBE [Concomitant]
  5. ENALAPRIL MALEATE [Concomitant]
  6. CARVEDILOL [Concomitant]
  7. MELOXICAM [Concomitant]

REACTIONS (6)
  - IMMUNOSUPPRESSION [None]
  - LOWER RESPIRATORY TRACT INFECTION [None]
  - MALAISE [None]
  - PNEUMONIA [None]
  - POLYMYALGIA RHEUMATICA [None]
  - URINARY TRACT INFECTION [None]
